FAERS Safety Report 12295956 (Version 1)
Quarter: 2016Q2

REPORT INFORMATION
  Report Type: Spontaneous
  Country: US (occurrence: US)
  Receive Date: 20160422
  Receipt Date: 20160422
  Transmission Date: 20160815
  Serious: No
  Sender: FDA-Public Use
  Company Number: US-PURDUE-USA-2016-0128518

PATIENT
  Age: 71 Year
  Sex: Female
  Weight: 79.37 kg

DRUGS (1)
  1. OXYCODONE HCL CR TABLETS (SIMILAR TO NDA 22-272) [Suspect]
     Active Substance: OXYCODONE HYDROCHLORIDE
     Indication: PAIN
     Dosage: 5-10 MG, Q4H PRN
     Route: 048
     Dates: start: 2013

REACTIONS (1)
  - Inadequate analgesia [Unknown]

NARRATIVE: CASE EVENT DATE: 2013
